FAERS Safety Report 18215827 (Version 3)
Quarter: 2020Q4

REPORT INFORMATION
  Report Type: Spontaneous
  Country: JP (occurrence: JP)
  Receive Date: 20200901
  Receipt Date: 20201002
  Transmission Date: 20210113
  Serious: Yes (Death, Other)
  Sender: FDA-Public Use
  Company Number: JP-TEVA-2020-JP-1822094

PATIENT
  Age: 86 Year
  Sex: Male

DRUGS (9)
  1. AVOLVE [Concomitant]
     Active Substance: DUTASTERIDE
     Route: 065
     Dates: start: 20160118, end: 20200721
  2. OPALMON [Concomitant]
     Active Substance: LIMAPROST
     Route: 065
     Dates: start: 20170620, end: 20200721
  3. ZALUTIA [Concomitant]
     Active Substance: TADALAFIL
     Route: 065
     Dates: start: 20160118, end: 20200721
  4. AMITIZA [Concomitant]
     Active Substance: LUBIPROSTONE
     Route: 065
     Dates: start: 20160714, end: 20200721
  5. MAGMITT [Concomitant]
     Active Substance: MAGNESIUM OXIDE
     Route: 065
     Dates: start: 20160118, end: 20200721
  6. XARELTO [Concomitant]
     Active Substance: RIVAROXABAN
     Route: 065
     Dates: start: 20180228, end: 20200721
  7. AZILECT [Suspect]
     Active Substance: RASAGILINE MESYLATE
     Indication: PARKINSON^S DISEASE
     Dosage: .5 MILLIGRAM DAILY; QD(ONE A DAY), THERAPY DURATION: 1 MONTH 14 DAYS
     Route: 048
     Dates: start: 20200206, end: 20200319
  8. MENESIT [Concomitant]
     Active Substance: CARBIDOPA\LEVODOPA
     Route: 065
     Dates: start: 20160415, end: 20200721
  9. MUCODYNE [Concomitant]
     Active Substance: CARBOCYSTEINE
     Dates: start: 20171205, end: 20200721

REACTIONS (6)
  - Restlessness [Recovered/Resolved]
  - Aspiration [Unknown]
  - Decreased activity [Unknown]
  - Marasmus [Fatal]
  - Drug ineffective [Unknown]
  - Pneumonia aspiration [Unknown]

NARRATIVE: CASE EVENT DATE: 20200319
